FAERS Safety Report 25458067 (Version 5)
Quarter: 2025Q4

REPORT INFORMATION
  Report Type: Report from Study
  Country: JP (occurrence: JP)
  Receive Date: 20250620
  Receipt Date: 20251120
  Transmission Date: 20260117
  Serious: Yes (Other)
  Sender: TAKEDA
  Company Number: JP-TAKEDA-2025TJP005973

PATIENT
  Age: 47 Year
  Sex: Female
  Weight: 49 kg

DRUGS (27)
  1. APADAMTASE ALFA [Suspect]
     Active Substance: APADAMTASE ALFA
     Indication: Congenital thrombotic thrombocytopenic purpura
     Dosage: 40 INTERNATIONAL UNIT/KILOGRAM, Q2WEEKS
     Dates: start: 20240827
  2. BISOPROLOL FUMARATE [Concomitant]
     Active Substance: BISOPROLOL FUMARATE
     Dosage: UNK
  3. ASPIRIN [Concomitant]
     Active Substance: ASPIRIN
     Dosage: UNK
  4. FEBUXOSTAT [Concomitant]
     Active Substance: FEBUXOSTAT
     Dosage: UNK
  5. PITAVASTATIN CALCIUM [Concomitant]
     Active Substance: PITAVASTATIN CALCIUM
     Dosage: UNK
  6. LOMERIZINE HYDROCHLORIDE [Concomitant]
     Active Substance: LOMERIZINE HYDROCHLORIDE
     Dosage: UNK
  7. DIART [Concomitant]
     Dosage: UNK
  8. ZOLPIDEM TARTRATE [Concomitant]
     Active Substance: ZOLPIDEM TARTRATE
     Dosage: UNK
  9. FERRIC CITRATE ANHYDROUS [Concomitant]
     Active Substance: FERRIC CITRATE ANHYDROUS
     Dosage: UNK
  10. NEXIUM [Concomitant]
     Active Substance: ESOMEPRAZOLE MAGNESIUM
     Dosage: UNK
  11. FOSRENOL [Concomitant]
     Active Substance: LANTHANUM CARBONATE
     Dosage: UNK
  12. TANKARU [Concomitant]
     Dosage: UNK
  13. FEXOFENADINE HYDROCHLORIDE [Concomitant]
     Active Substance: FEXOFENADINE HYDROCHLORIDE
     Dosage: UNK
  14. PARSABIV [Concomitant]
     Active Substance: ETELCALCETIDE HYDROCHLORIDE
     Dosage: UNK
  15. MAXACALCITOL [Concomitant]
     Active Substance: MAXACALCITOL
     Dosage: UNK
  16. ERYTHROPOIETIN [Concomitant]
     Active Substance: ERYTHROPOIETIN
     Dosage: UNK
  17. AMEZINIUM METILSULFATE [Concomitant]
     Active Substance: AMEZINIUM METILSULFATE
     Dosage: UNK
  18. HERBALS [Concomitant]
     Active Substance: HERBALS
     Dosage: UNK
  19. DOMPERIDONE [Concomitant]
     Active Substance: DOMPERIDONE
     Dosage: UNK
  20. TENAPANOR HYDROCHLORIDE [Concomitant]
     Active Substance: TENAPANOR HYDROCHLORIDE
     Dosage: UNK
  21. PRASUGREL HYDROCHLORIDE [Concomitant]
     Active Substance: PRASUGREL HYDROCHLORIDE
     Dosage: UNK
  22. ESOMEPRAZOLE [Concomitant]
     Active Substance: ESOMEPRAZOLE
     Dosage: UNK
  23. EPOETIN ALFA BS [Concomitant]
     Active Substance: ERYTHROPOIETIN
     Dosage: UNK
  24. ACETAMINOPHEN\CAFFEINE\PROMETHAZINE\SALICYLAMIDE [Concomitant]
     Active Substance: ACETAMINOPHEN\CAFFEINE\PROMETHAZINE\SALICYLAMIDE
     Dosage: UNK
  25. CALONAL [Concomitant]
     Active Substance: ACETAMINOPHEN
     Dosage: UNK
  26. MIYA-BM [Concomitant]
     Active Substance: CLOSTRIDIUM BUTYRICUM SPORES STRAIN M-55
     Dosage: UNK
  27. FLUTIFORM [Concomitant]
     Active Substance: FLUTIFORM
     Dosage: UNK

REACTIONS (4)
  - Pneumonia [Recovered/Resolved]
  - Thrombotic cerebral infarction [Recovered/Resolved]
  - Thrombotic cerebral infarction [Recovered/Resolved]
  - Shunt stenosis [Recovered/Resolved]

NARRATIVE: CASE EVENT DATE: 20241126
